FAERS Safety Report 25074122 (Version 1)
Quarter: 2025Q1

REPORT INFORMATION
  Report Type: Report from Study
  Country: CA (occurrence: CA)
  Receive Date: 20250313
  Receipt Date: 20250313
  Transmission Date: 20250409
  Serious: Yes (Hospitalization)
  Sender: TEVA
  Company Number: US-TEVA-VS-3276648

PATIENT
  Age: 27 Year
  Sex: Female
  Weight: 52 kg

DRUGS (2)
  1. CINQAIR [Suspect]
     Active Substance: RESLIZUMAB
     Indication: Asthma
     Dosage: LAST INFUSION DATE: 2024-09-26
     Route: 042
     Dates: start: 20240828
  2. CINQAIR [Suspect]
     Active Substance: RESLIZUMAB
     Indication: Asthma
     Dosage: LAST INFUSION DATE: 2025-01-06.
     Route: 042
     Dates: start: 20240828

REACTIONS (9)
  - Rectal haemorrhage [Recovering/Resolving]
  - Inappropriate schedule of product administration [Unknown]
  - Diarrhoea [Recovering/Resolving]
  - Gastrointestinal disorder [Unknown]
  - Vomiting [Unknown]
  - Faeces discoloured [Recovering/Resolving]
  - Abdominal pain lower [Recovering/Resolving]
  - Incorrect dose administered [Unknown]
  - Vomiting [Recovering/Resolving]

NARRATIVE: CASE EVENT DATE: 20250201
